FAERS Safety Report 11240910 (Version 2)
Quarter: 2015Q4

REPORT INFORMATION
  Report Type: Spontaneous
  Country: US (occurrence: US)
  Receive Date: 20150706
  Receipt Date: 20151230
  Transmission Date: 20160304
  Serious: Yes (Other)
  Sender: FDA-Public Use
  Company Number: US-RB PHARMACEUTICALS LIMITED-RB-080783-2015

PATIENT
  Age: 31 Year
  Sex: Female

DRUGS (1)
  1. SUBOXONE [Suspect]
     Active Substance: BUPRENORPHINE HYDROCHLORIDE\NALOXONE HYDROCHLORIDE
     Indication: PRODUCT USED FOR UNKNOWN INDICATION
     Dosage: UNK
     Route: 065

REACTIONS (6)
  - Child neglect [Recovered/Resolved]
  - Borderline personality disorder [Unknown]
  - Overdose [None]
  - Bipolar disorder [Unknown]
  - Substance abuse [Recovered/Resolved]
  - Homicide [Recovered/Resolved]

NARRATIVE: CASE EVENT DATE: 20141019
